FAERS Safety Report 9482090 (Version 3)
Quarter: 2013Q3

REPORT INFORMATION
  Report Type: Spontaneous
  Country: MX (occurrence: MX)
  Receive Date: 20130828
  Receipt Date: 20130917
  Transmission Date: 20140515
  Serious: Yes (Other)
  Sender: FDA-Public Use
  Company Number: PHHY2013MX091855

PATIENT
  Age: 50 Year
  Sex: Male

DRUGS (2)
  1. IMATINIB [Suspect]
     Indication: ACUTE LYMPHOCYTIC LEUKAEMIA
     Dosage: UNK UKN, UNK
  2. IMATINIB [Suspect]
     Dosage: 300 MG, DAILY
     Dates: start: 201008

REACTIONS (1)
  - Nephrotic syndrome [Not Recovered/Not Resolved]
